FAERS Safety Report 6516478-3 (Version None)
Quarter: 2009Q4

REPORT INFORMATION
  Report Type: 
  Country: None (occurrence: None)
  Receive Date: 20091223
  Receipt Date: 20091216
  Transmission Date: 20100525
  Serious: Yes (Hospitalization)
  Sender: FDA-Public Use
  Company Number: JP-JNJFOC-20090803051

PATIENT
  Sex: Female
  Weight: 60 kg

DRUGS (12)
  1. REMICADE [Suspect]
     Dosage: 1 INFUSION ON AN UNSPECIFIED DATE  (2 INFUSIONS TOTAL)
     Route: 042
  2. REMICADE [Suspect]
     Indication: RHEUMATOID ARTHRITIS
     Route: 042
  3. PREDONINE [Suspect]
     Indication: RHEUMATOID ARTHRITIS
     Route: 048
  4. RHEUMATREX [Suspect]
     Indication: RHEUMATOID ARTHRITIS
     Route: 048
  5. ACINON [Concomitant]
     Indication: REFLUX OESOPHAGITIS
     Route: 048
  6. CELECOX [Concomitant]
     Indication: OSTEOARTHRITIS
     Route: 048
  7. OMEPRAL [Concomitant]
     Indication: REFLUX OESOPHAGITIS
     Route: 048
  8. FOLIAMIN [Concomitant]
     Indication: RHEUMATOID ARTHRITIS
     Route: 048
  9. BENET [Concomitant]
     Indication: OSTEOPOROSIS
     Route: 048
  10. NEUROTROPIN [Concomitant]
     Indication: OSTEOARTHRITIS
     Dosage: DOSE: 8 UT TWICE A DAY
     Route: 048
  11. ALOSITOL [Concomitant]
     Indication: HYPERURICAEMIA
     Route: 048
  12. KARY UNI [Concomitant]
     Indication: CATARACT

REACTIONS (5)
  - INTERVERTEBRAL DISCITIS [None]
  - MUSCLE ABSCESS [None]
  - PHARYNGEAL ABSCESS [None]
  - PNEUMONIA ASPIRATION [None]
  - STAPHYLOCOCCAL SEPSIS [None]
